FAERS Safety Report 15552953 (Version 2)
Quarter: 2018Q4

REPORT INFORMATION
  Report Type: Spontaneous
  Country: RO (occurrence: RO)
  Receive Date: 20181025
  Receipt Date: 20181106
  Transmission Date: 20190205
  Serious: Yes (Other)
  Sender: FDA-Public Use
  Company Number: RO-AMGEN-ROUSP2018133588

PATIENT
  Age: 58 Year
  Sex: Male

DRUGS (2)
  1. INSULIN [Concomitant]
     Active Substance: INSULIN NOS
     Indication: DIABETES MELLITUS
     Dosage: UNK
     Dates: start: 201808
  2. ENBREL [Suspect]
     Active Substance: ETANERCEPT
     Indication: ANKYLOSING SPONDYLITIS
     Dosage: 50 MG, WEEKLY
     Route: 058

REACTIONS (9)
  - Bone pain [Unknown]
  - Hyperhidrosis [Unknown]
  - Incorrect dose administered by device [Unknown]
  - Psoriasis [Recovering/Resolving]
  - Diabetes mellitus [Unknown]
  - Gait disturbance [Unknown]
  - Device defective [Unknown]
  - Disturbance in attention [Unknown]
  - Memory impairment [Unknown]
